FAERS Safety Report 23591922 (Version 1)
Quarter: 2024Q1

REPORT INFORMATION
  Report Type: Spontaneous
  Country: US (occurrence: None)
  Receive Date: 20240302
  Receipt Date: 20240302
  Transmission Date: 20240409
  Serious: No
  Sender: FDA-Public Use
  Company Number: None

PATIENT
  Age: 64 Year
  Sex: Female
  Weight: 69.75 kg

DRUGS (11)
  1. CLARITHROMYCIN [Suspect]
     Active Substance: CLARITHROMYCIN
     Indication: Helicobacter gastritis
     Dosage: 1 TABLET TWICE A DAY ORAL
     Route: 048
  2. AMOXICILLIN [Suspect]
     Active Substance: AMOXICILLIN
     Indication: Helicobacter gastritis
     Dosage: 2 CAPSULES TWICE A DAY ORAL
     Route: 048
  3. MIRABEGRON [Concomitant]
     Active Substance: MIRABEGRON
  4. ZOLMITRIPTAN [Concomitant]
     Active Substance: ZOLMITRIPTAN
  5. Vancyclovir [Concomitant]
  6. Tacrolimus Ointment [Concomitant]
  7. OMEPRAZOLE [Concomitant]
     Active Substance: OMEPRAZOLE
  8. CULTURELLE [Concomitant]
     Active Substance: LACTOBACILLUS RHAMNOSUS
  9. Centrum Over 50 Multivitamin [Concomitant]
  10. Hair,Skin,Nails supplement [Concomitant]
  11. LANSOPRAZOLE [Suspect]
     Active Substance: LANSOPRAZOLE

REACTIONS (3)
  - Skin exfoliation [None]
  - Pruritus [None]
  - Skin disorder [None]

NARRATIVE: CASE EVENT DATE: 20240221
